FAERS Safety Report 6030505-1 (Version None)
Quarter: 2008Q4

REPORT INFORMATION
  Report Type: 
  Country: None (occurrence: None)
  Receive Date: 20081222
  Receipt Date: 20080908
  Transmission Date: 20090506
  Serious: Yes (Other)
  Sender: FDA-Public Use
  Company Number: US-WYE-H05944008

PATIENT
  Age: 44 Year
  Sex: Female
  Weight: 90.8 kg

DRUGS (3)
  1. PRISTIQ [Suspect]
     Indication: MAJOR DEPRESSION
     Dosage: 50 MG 1X PER 1 DAY,ORAL ; 50 MG 1X PER 1 DAY,ORAL
     Route: 048
     Dates: start: 20080802, end: 20080815
  2. PRISTIQ [Suspect]
     Indication: MAJOR DEPRESSION
     Dosage: 50 MG 1X PER 1 DAY,ORAL ; 50 MG 1X PER 1 DAY,ORAL
     Route: 048
     Dates: start: 20080101
  3. AVAPRO [Concomitant]

REACTIONS (1)
  - HYPERTENSION [None]
